FAERS Safety Report 11365318 (Version 1)
Quarter: 2015Q3

REPORT INFORMATION
  Report Type: Report from Study
  Country: ES (occurrence: ES)
  Receive Date: 20150811
  Receipt Date: 20150811
  Transmission Date: 20151125
  Serious: Yes (Hospitalization)
  Sender: FDA-Public Use
  Company Number: ES-GLAXOSMITHKLINE-ES2015111415

PATIENT
  Age: 64 Year
  Sex: Male

DRUGS (5)
  1. METAMIZOL MAGNESICO [Suspect]
     Active Substance: METAMIZOLE MAGNESIUM
     Indication: TOOTHACHE
     Route: 048
     Dates: start: 20150223, end: 20150327
  2. DICLOFENACO [Suspect]
     Active Substance: DICLOFENAC
     Indication: TOOTHACHE
     Route: 048
     Dates: start: 20150223, end: 20150327
  3. AMOXICILINA + CLAVULANIC ACID [Suspect]
     Active Substance: AMOXICILLIN\CLAVULANIC ACID
     Indication: TOOTH INFECTION
     Route: 048
     Dates: start: 20150223, end: 20150308
  4. IBUPROFENO [Suspect]
     Active Substance: IBUPROFEN
     Indication: TOOTHACHE
     Route: 048
     Dates: start: 20150223, end: 20150327
  5. VALACICLOVIR HYDROCHLORIDE [Suspect]
     Active Substance: VALACYCLOVIR HYDROCHLORIDE
     Indication: VARICELLA
     Dosage: UNK
     Route: 048
     Dates: start: 201503, end: 2015

REACTIONS (1)
  - Hepatotoxicity [Recovering/Resolving]

NARRATIVE: CASE EVENT DATE: 20150320
